FAERS Safety Report 9184009 (Version 1)
Quarter: 2013Q1

REPORT INFORMATION
  Report Type: Spontaneous
  Country: US (occurrence: US)
  Receive Date: 20130322
  Receipt Date: 20130322
  Transmission Date: 20140127
  Serious: Yes (Other)
  Sender: FDA-Public Use
  Company Number: US-BRISTOL-MYERS SQUIBB COMPANY-16696882

PATIENT
  Age: 62 Year
  Sex: Male
  Weight: 81.63 kg

DRUGS (22)
  1. ERBITUX [Suspect]
     Indication: TONSIL CANCER
     Dosage: 400MG/M2 (825MG), 2ND DOSE 250MG/M2 (520MG) ON 7JUL12?LAST INF ON 2012.
     Route: 042
     Dates: start: 20120531
  2. ERBITUX [Suspect]
     Indication: HEAD AND NECK CANCER
     Dosage: 400MG/M2 (825MG), 2ND DOSE 250MG/M2 (520MG) ON 7JUL12?LAST INF ON 2012.
     Route: 042
     Dates: start: 20120531
  3. SOMA [Concomitant]
     Indication: MUSCLE SPASMS
     Dosage: TABS. 3 TIMES A DAY
     Route: 048
  4. NORCO [Concomitant]
     Dosage: 1 DF= 7.5MG-325MG. TAB. EVERY 6 HRS
     Route: 048
  5. FENTANYL [Concomitant]
     Dosage: EXTENDED RELEASE. ALSO 50 MCG. EVERY 72 HRS
     Route: 062
  6. INSULIN [Concomitant]
     Dosage: DIABETIC SYRINGES AND TEST STRIPS
  7. NOVOLIN 70/30 [Concomitant]
     Dosage: 1 DF= 20 UNITS
     Route: 058
  8. SENNA [Concomitant]
  9. DIFLUCAN [Concomitant]
     Dosage: DAY 1 TWO TABS
     Route: 048
  10. DILAUDID [Concomitant]
     Dosage: TAB
     Route: 048
  11. ZOFRAN [Concomitant]
     Dosage: TAB. 1 EVERY 6 HRS
     Route: 048
  12. THORAZINE [Concomitant]
     Indication: HICCUPS
     Dosage: AS NESCESSARY
  13. MEDROL [Concomitant]
     Dosage: DOSE PAK TAB. AS DIRECTED
     Route: 048
  14. PROCHLORPERAZINE [Concomitant]
     Dosage: TAB. EVERY 6 HRS FOR 30DAYS
     Route: 048
  15. PALONOSETRON [Concomitant]
     Dosage: PIGGY BACK
     Route: 042
  16. DEXAMETHASONE [Concomitant]
     Dosage: PIGGY BACK
     Route: 042
  17. FOSAPREPITANT [Concomitant]
     Dosage: PIGGY BACK
     Route: 042
  18. FLUOROURACIL [Concomitant]
     Dosage: PIGGY BACK. ALSO 8040MG
     Route: 042
  19. DOCETAXEL [Concomitant]
     Dosage: PIGGY BACK ALSO 150MG
     Route: 042
  20. DIPHENHYDRAMINE [Concomitant]
     Dosage: PIGGY BACK.
     Route: 042
  21. FAMOTIDINE [Concomitant]
     Dosage: PIGGY BACK
     Route: 042
  22. CISPLATIN FOR INJ [Concomitant]
     Dosage: PIGGY BACK. ALSO 210MG
     Route: 042

REACTIONS (9)
  - Palmar-plantar erythrodysaesthesia syndrome [Unknown]
  - Staphylococcal infection [Unknown]
  - Mucosal inflammation [Recovered/Resolved]
  - Diarrhoea [Recovered/Resolved]
  - Rash generalised [Recovered/Resolved]
  - Acne [Recovered/Resolved]
  - Pain [Recovered/Resolved]
  - Pruritus [Recovered/Resolved]
  - Skin disorder [Recovered/Resolved]
